FAERS Safety Report 5278731-3 (Version None)
Quarter: 2007Q1

REPORT INFORMATION
  Report Type: 
  Country: None (occurrence: None)
  Receive Date: 20061213
  Receipt Date: 20050617
  Transmission Date: 20070707
  Serious: No
  Sender: FDA-Public Use
  Company Number: 2005UW06155

PATIENT
  Age: 12 Year
  Sex: Male
  Weight: 36.7414 kg

DRUGS (6)
  1. SEROQUEL [Suspect]
     Indication: ANGER
     Dosage: 50 MG HS PO
     Route: 048
     Dates: start: 20050309, end: 20050311
  2. SEROQUEL [Suspect]
     Indication: ANGER
     Dosage: 100 MG HS PO
     Route: 048
     Dates: start: 20050312, end: 20050314
  3. SEROQUEL [Suspect]
     Indication: ANGER
     Dosage: 150 MG HS PO
     Route: 048
     Dates: start: 20050315, end: 20050317
  4. SEROQUEL [Suspect]
     Indication: ANGER
     Dosage: 200 MG HS PO
     Route: 048
     Dates: start: 20050318, end: 20050418
  5. CONCERTA [Concomitant]
  6. WELLBUTRIN [Concomitant]

REACTIONS (1)
  - GRAND MAL CONVULSION [None]
